FAERS Safety Report 18299591 (Version 1)
Quarter: 2020Q3

REPORT INFORMATION
  Report Type: Spontaneous
  Country: US (occurrence: US)
  Receive Date: 20200923
  Receipt Date: 20200923
  Transmission Date: 20201103
  Serious: Yes (Hospitalization, Other)
  Sender: FDA-Public Use
  Company Number: US-STRIDES ARCOLAB LIMITED-2019SP008611

PATIENT
  Age: 50 Year
  Sex: Male

DRUGS (1)
  1. ERGOCALCIFEROL. [Suspect]
     Active Substance: ERGOCALCIFEROL
     Indication: HUNTINGTON^S DISEASE
     Dosage: 1,00,000 IU DAILY FOR MANY WEEKS
     Route: 048

REACTIONS (9)
  - Hypervitaminosis D [Unknown]
  - Toxicity to various agents [Unknown]
  - Overdose [Unknown]
  - Decreased appetite [Unknown]
  - Off label use [Unknown]
  - Constipation [Unknown]
  - Hypercalcaemia [Recovered/Resolved]
  - Nephrolithiasis [Unknown]
  - Acute kidney injury [Unknown]
